FAERS Safety Report 9418998 (Version 2)
Quarter: 2013Q3

REPORT INFORMATION
  Report Type: Spontaneous
  Country: JP (occurrence: JP)
  Receive Date: 20130725
  Receipt Date: 20130826
  Transmission Date: 20140515
  Serious: Yes (Other)
  Sender: FDA-Public Use
  Company Number: PHHY2013JP078334

PATIENT
  Age: 65 Year
  Sex: Female

DRUGS (3)
  1. RASILEZ [Suspect]
     Indication: HYPERTENSION
     Dosage: 150 MG, DAILY
     Route: 048
     Dates: start: 20101105
  2. ECARD [Concomitant]
     Indication: HYPERTENSION
     Dosage: 1 DF, UNK
     Route: 048
     Dates: start: 20100809
  3. TRAZENTA [Concomitant]
     Indication: GLUCOSE TOLERANCE IMPAIRED
     Dosage: 5 MG, UNK
     Route: 048
     Dates: start: 20130718

REACTIONS (1)
  - Diabetes mellitus [Not Recovered/Not Resolved]
